FAERS Safety Report 16669670 (Version 1)
Quarter: 2019Q3

REPORT INFORMATION
  Report Type: Spontaneous
  Country: PL (occurrence: PL)
  Receive Date: 20190805
  Receipt Date: 20190805
  Transmission Date: 20191004
  Serious: Yes (Other)
  Sender: FDA-Public Use
  Company Number: PL-TEVA-2019-PL-1088337

PATIENT
  Sex: Male

DRUGS (1)
  1. FLUCONAZOLE 150 MG [Suspect]
     Active Substance: FLUCONAZOLE
     Indication: ONYCHOMYCOSIS
     Route: 048

REACTIONS (2)
  - Urinary incontinence [Unknown]
  - Pollakiuria [Unknown]
